FAERS Safety Report 8473177-9 (Version None)
Quarter: 2012Q2

REPORT INFORMATION
  Report Type: 
  Country: None (occurrence: None)
  Receive Date: 20120627
  Receipt Date: 20120621
  Transmission Date: 20120825
  Serious: Yes (Other)
  Sender: FDA-Public Use
  Company Number: CHPA2012US012884

PATIENT
  Age: 56 Year
  Sex: Male

DRUGS (4)
  1. TRILIPIX [Concomitant]
  2. PRAVASTATIN [Concomitant]
  3. PREVACID 24 HR [Suspect]
     Indication: DYSPEPSIA
     Dosage: 15 MG EVERY 3-4 DAYS USUALLY
     Route: 048
     Dates: start: 20090101
  4. ATENOLOL [Concomitant]

REACTIONS (2)
  - DIABETES MELLITUS [None]
  - INCORRECT DRUG ADMINISTRATION DURATION [None]
